FAERS Safety Report 7919520-8 (Version None)
Quarter: 2011Q4

REPORT INFORMATION
  Report Type: 
  Country: None (occurrence: None)
  Receive Date: 20111117
  Receipt Date: 20111107
  Transmission Date: 20120403
  Serious: Yes (Other)
  Sender: FDA-Public Use
  Company Number: VE-JNJFOC-20111103955

PATIENT
  Age: 51 Year
  Sex: Male

DRUGS (2)
  1. METRONIDAZOLE [Interacting]
     Indication: GASTROINTESTINAL DISORDER
     Route: 065
  2. KETOCONAZOLE [Suspect]
     Indication: TINEA PEDIS
     Route: 048

REACTIONS (2)
  - DRUG ERUPTION [None]
  - DRUG INTERACTION [None]
